FAERS Safety Report 5695731-X (Version None)
Quarter: 2008Q2

REPORT INFORMATION
  Report Type: 
  Country: None (occurrence: None)
  Receive Date: 20080404
  Receipt Date: 20080404
  Transmission Date: 20081010
  Serious: Yes (Hospitalization)
  Sender: FDA-Public Use
  Company Number: None

PATIENT
  Sex: Male
  Weight: 71.8 kg

DRUGS (3)
  1. FLUOROURACIL [Suspect]
     Dosage: 5180 MG
  2. CISPLATIN [Suspect]
     Dosage: 110 MG
  3. ELLENCE [Suspect]
     Dosage: 90 MG

REACTIONS (4)
  - BLOOD CREATININE INCREASED [None]
  - BLOOD UREA INCREASED [None]
  - INFECTION [None]
  - MUCOSAL INFLAMMATION [None]
